FAERS Safety Report 6053981-7 (Version None)
Quarter: 2009Q1

REPORT INFORMATION
  Report Type: 
  Country: None (occurrence: None)
  Receive Date: 20090127
  Receipt Date: 20090119
  Transmission Date: 20090719
  Serious: Yes (Death, Hospitalization, Disabling)
  Sender: FDA-Public Use
  Company Number: CG-MERCK-0901USA03126

PATIENT
  Age: 69 Year
  Sex: Male

DRUGS (1)
  1. STROMECTOL [Suspect]
     Indication: ONCHOCERCIASIS
     Route: 048
     Dates: start: 20081109, end: 20081109

REACTIONS (15)
  - ASTHENIA [None]
  - CARDIO-RESPIRATORY ARREST [None]
  - COMA [None]
  - DEHYDRATION [None]
  - DIARRHOEA [None]
  - DISABILITY [None]
  - HEADACHE [None]
  - INCOHERENT [None]
  - INFECTION [None]
  - POLYURIA [None]
  - PYREXIA [None]
  - RENAL FAILURE CHRONIC [None]
  - SPEECH DISORDER [None]
  - URINARY RETENTION [None]
  - VERTIGO [None]
